FAERS Safety Report 9039883 (Version 2)
Quarter: 2013Q3

REPORT INFORMATION
  Report Type: Spontaneous
  Country: US (occurrence: US)
  Receive Date: 20130130
  Receipt Date: 20130923
  Transmission Date: 20140515
  Serious: No
  Sender: FDA-Public Use
  Company Number: US-BIOGENIDEC-2013BI007311

PATIENT
  Age: 58 Year
  Sex: Female

DRUGS (1)
  1. TYSABRI [Suspect]
     Indication: MULTIPLE SCLEROSIS
     Route: 042
     Dates: start: 20121127

REACTIONS (6)
  - Carpal tunnel syndrome [Unknown]
  - Hypoaesthesia [Recovered/Resolved with Sequelae]
  - Mobility decreased [Not Recovered/Not Resolved]
  - Feeling drunk [Not Recovered/Not Resolved]
  - Fatigue [Recovered/Resolved with Sequelae]
  - Dizziness [Not Recovered/Not Resolved]
